FAERS Safety Report 8106607-2 (Version None)
Quarter: 2012Q1

REPORT INFORMATION
  Report Type: 
  Country: None (occurrence: None)
  Receive Date: 20120202
  Receipt Date: 20120123
  Transmission Date: 20120608
  Serious: No
  Sender: FDA-Public Use
  Company Number: US-ELI_LILLY_AND_COMPANY-US201201007555

PATIENT
  Sex: Male

DRUGS (2)
  1. CYMBALTA [Suspect]
     Indication: DEPRESSION
     Dosage: 60 MG, QD
     Dates: start: 20100101
  2. CYMBALTA [Suspect]
     Dosage: 30 MG, QD

REACTIONS (3)
  - HEPATIC ENZYME INCREASED [None]
  - MUSCLE SPASMS [None]
  - DRUG INEFFECTIVE [None]
